FAERS Safety Report 20834150 (Version 1)
Quarter: 2022Q2

REPORT INFORMATION
  Report Type: Spontaneous
  Country: CN (occurrence: CN)
  Receive Date: 20220516
  Receipt Date: 20220516
  Transmission Date: 20220721
  Serious: Yes (Hospitalization, Other)
  Sender: FDA-Public Use
  Company Number: None

PATIENT
  Age: 54 Year
  Sex: Female
  Weight: 50 kg

DRUGS (13)
  1. CYCLOPHOSPHAMIDE [Suspect]
     Active Substance: CYCLOPHOSPHAMIDE
     Indication: Breast cancer female
     Dosage: ONE COURSE OF CHEMOTHERAPY
     Route: 041
     Dates: start: 20220414, end: 20220414
  2. CYCLOPHOSPHAMIDE [Suspect]
     Active Substance: CYCLOPHOSPHAMIDE
     Indication: Metastasis
  3. CYCLOPHOSPHAMIDE [Suspect]
     Active Substance: CYCLOPHOSPHAMIDE
     Indication: Hormone receptor positive breast cancer
  4. CYCLOPHOSPHAMIDE [Suspect]
     Active Substance: CYCLOPHOSPHAMIDE
     Indication: HER2 negative breast cancer
  5. CYCLOPHOSPHAMIDE [Suspect]
     Active Substance: CYCLOPHOSPHAMIDE
     Indication: Recurrent cancer
  6. EPIRUBICIN [Suspect]
     Active Substance: EPIRUBICIN
     Indication: Breast cancer female
     Dosage: ONE COURSE OF CHEMOTHERAPY
     Route: 041
     Dates: start: 20220414, end: 20220414
  7. EPIRUBICIN [Suspect]
     Active Substance: EPIRUBICIN
     Indication: Metastasis
  8. EPIRUBICIN [Suspect]
     Active Substance: EPIRUBICIN
     Indication: Hormone receptor positive breast cancer
  9. EPIRUBICIN [Suspect]
     Active Substance: EPIRUBICIN
     Indication: HER2 negative breast cancer
  10. EPIRUBICIN [Suspect]
     Active Substance: EPIRUBICIN
     Indication: Recurrent cancer
  11. SODIUM CHLORIDE [Suspect]
     Active Substance: SODIUM CHLORIDE
     Indication: Medication dilution
     Dosage: ONE COURSE OF CHEMOTHERAPY, DOCETAXEL (100 MG) + 0.9% NS (250 ML)
     Route: 041
     Dates: start: 20220414, end: 20220414
  12. SODIUM CHLORIDE [Suspect]
     Active Substance: SODIUM CHLORIDE
     Dosage: ONE COURSE OF CHEMOTHERAPY, CYCLOPHOSPHAMIDE (700 MG) + 0.9% NS (100 ML)
     Route: 041
     Dates: start: 20220414, end: 20220414
  13. SODIUM CHLORIDE [Suspect]
     Active Substance: SODIUM CHLORIDE
     Dosage: ONE COURSE OF CHEMOTHERAPY, EPIRUBICIN HYDROCHLORIDE (100 MG) + 0.9% NS (100 ML)
     Route: 041
     Dates: start: 20220414, end: 20220414

REACTIONS (3)
  - Myelosuppression [Unknown]
  - White blood cell count decreased [Recovering/Resolving]
  - Neutrophil count decreased [Recovering/Resolving]

NARRATIVE: CASE EVENT DATE: 20220421
